FAERS Safety Report 17418714 (Version 1)
Quarter: 2020Q1

REPORT INFORMATION
  Report Type: Report from Study
  Country: None (occurrence: US)
  Receive Date: 20200211
  Receipt Date: 20200211
  Transmission Date: 20200409
  Serious: Yes (Hospitalization, Other)
  Sender: FDA-Public Use
  Company Number: US-ABBVIE-19K-163-2995262-00

PATIENT
  Sex: Female
  Weight: 77.18 kg

DRUGS (1)
  1. HUMIRA [Suspect]
     Active Substance: ADALIMUMAB
     Indication: HIDRADENITIS
     Route: 058
     Dates: start: 201811

REACTIONS (8)
  - Therapeutic product effect decreased [Not Recovered/Not Resolved]
  - Wound [Unknown]
  - Abscess [Not Recovered/Not Resolved]
  - Mass [Unknown]
  - Platelet disorder [Not Recovered/Not Resolved]
  - Epistaxis [Recovering/Resolving]
  - Infection [Not Recovered/Not Resolved]
  - Staphylococcal infection [Unknown]

NARRATIVE: CASE EVENT DATE: 2019
